FAERS Safety Report 8418417-7 (Version None)
Quarter: 2012Q2

REPORT INFORMATION
  Report Type: 
  Country: None (occurrence: None)
  Receive Date: 20120607
  Receipt Date: 20120603
  Transmission Date: 20120825
  Serious: Yes (Other)
  Sender: FDA-Public Use
  Company Number: CA-PFIZER INC-2012133724

PATIENT
  Sex: Male

DRUGS (1)
  1. VARENICLINE TARTRATE [Suspect]
     Dosage: UNK
     Dates: start: 20120501

REACTIONS (2)
  - PERSONALITY CHANGE [None]
  - SUICIDAL IDEATION [None]
